FAERS Safety Report 11067880 (Version 5)
Quarter: 2016Q3

REPORT INFORMATION
  Report Type: Spontaneous
  Country: JP (occurrence: JP)
  Receive Date: 20150427
  Receipt Date: 20160713
  Transmission Date: 20161109
  Serious: Yes (Hospitalization, Other)
  Sender: FDA-Public Use
  Company Number: JP-AMGEN-JPNSP2015039998

PATIENT
  Age: 51 Year
  Sex: Female
  Weight: 52 kg

DRUGS (5)
  1. LEUPLIN [Concomitant]
     Active Substance: LEUPROLIDE ACETATE
     Dosage: 3.75 MG, QD
     Route: 058
     Dates: start: 20130803
  2. CARBOPLATIN W/ETOPOSIDE [Concomitant]
     Dosage: UNK
     Dates: start: 20130805, end: 20140214
  3. RANMARK [Suspect]
     Active Substance: DENOSUMAB
     Indication: METASTASES TO BONE
     Dosage: 120 MG, UNK
     Route: 058
     Dates: start: 20130725, end: 20150317
  4. NOLVADEX [Concomitant]
     Active Substance: TAMOXIFEN CITRATE
     Dosage: 20 MG, QD
     Route: 048
     Dates: start: 20130803
  5. PACLITAXEL W/CARBOPLATIN [Concomitant]
     Active Substance: CARBOPLATIN\PACLITAXEL
     Dosage: UNK
     Dates: start: 20140227, end: 20140903

REACTIONS (4)
  - Osteonecrosis of jaw [Recovered/Resolved]
  - Carotid artery stenosis [Unknown]
  - Osteonecrosis [Unknown]
  - VIth nerve paralysis [Unknown]

NARRATIVE: CASE EVENT DATE: 20140617
